FAERS Safety Report 19919937 (Version 1)
Quarter: 2021Q4

REPORT INFORMATION
  Report Type: Spontaneous
  Country: IN (occurrence: IN)
  Receive Date: 20211005
  Receipt Date: 20211005
  Transmission Date: 20220303
  Serious: Yes (Other)
  Sender: FDA-Public Use
  Company Number: IN-DRREDDYS-LIT/IND/21/0142208

PATIENT
  Age: 38 Year
  Sex: Male

DRUGS (2)
  1. ATORVASTATIN [Suspect]
     Active Substance: ATORVASTATIN
     Indication: Lateral medullary syndrome
  2. ASPIRIN [Suspect]
     Active Substance: ASPIRIN
     Indication: Lateral medullary syndrome

REACTIONS (1)
  - Drug ineffective [Unknown]
